FAERS Safety Report 11379309 (Version 1)
Quarter: 2015Q3

REPORT INFORMATION
  Report Type: Spontaneous
  Country: US (occurrence: US)
  Receive Date: 20150811
  Receipt Date: 20150811
  Transmission Date: 20151125
  Serious: No
  Sender: FDA-Public Use
  Company Number: US-ELI_LILLY_AND_COMPANY-US200907001431

PATIENT
  Age: 37 Year
  Sex: Male

DRUGS (1)
  1. CIALIS [Suspect]
     Active Substance: TADALAFIL
     Dosage: 20 MG, DAILY (1/D)
     Route: 065
     Dates: start: 20090526

REACTIONS (2)
  - Drug effect incomplete [Unknown]
  - Drug administration error [Unknown]
